FAERS Safety Report 13014138 (Version 3)
Quarter: 2017Q1

REPORT INFORMATION
  Report Type: Spontaneous
  Country: JP (occurrence: JP)
  Receive Date: 20161209
  Receipt Date: 20170327
  Transmission Date: 20170428
  Serious: Yes (Death, Hospitalization)
  Sender: FDA-Public Use
  Company Number: JP-TAIHO ONCOLOGY INC-JPTT161242

PATIENT
  Age: 55 Year
  Sex: Male
  Weight: 67 kg

DRUGS (11)
  1. CALONAL [Concomitant]
     Active Substance: ACETAMINOPHEN
     Indication: CANCER PAIN
     Dosage: DETAILS NOT REPORTED
     Route: 048
     Dates: end: 20161019
  2. CILOSTAZOL. [Concomitant]
     Active Substance: CILOSTAZOL
     Indication: CEREBRAL INFARCTION
     Dosage: DETAILS NOT REPORTED
     Route: 048
     Dates: end: 20161019
  3. BAYASPIRIN [Concomitant]
     Active Substance: ASPIRIN
     Indication: CEREBRAL INFARCTION
     Dosage: DETAILS NOT REPORTED
     Route: 048
     Dates: end: 20161019
  4. MICARDIS [Concomitant]
     Active Substance: TELMISARTAN
     Indication: HYPERTENSION
     Dosage: DETAILS NOT REPORTED
     Route: 048
     Dates: end: 20161019
  5. LANSOPRAZOLE. [Concomitant]
     Active Substance: LANSOPRAZOLE
     Dosage: DETAILS NOT REPORTED
     Route: 048
     Dates: end: 20161019
  6. MAGMITT [Concomitant]
     Active Substance: MAGNESIUM OXIDE
     Indication: CONSTIPATION
     Dosage: DETAILS NOT REPORTED
     Route: 048
     Dates: end: 20161019
  7. OXYCONTIN [Concomitant]
     Active Substance: OXYCODONE HYDROCHLORIDE
     Indication: CANCER PAIN
     Route: 048
     Dates: start: 20160922, end: 20161019
  8. ABSTRAL [Concomitant]
     Active Substance: FENTANYL CITRATE
     Indication: CANCER PAIN
     Dosage: 100 MICROGRAMS/DOSE, NUMBER OF DIVIDED DOSES NOT REPORTED
     Route: 060
     Dates: end: 20161019
  9. LONSURF [Suspect]
     Active Substance: TIPIRACIL HYDROCHLORIDE\TRIFLURIDINE
     Indication: ANAL CANCER
     Route: 048
     Dates: start: 20160930, end: 20161004
  10. LOXOPROFEN SODIUM [Concomitant]
     Active Substance: LOXOPROFEN SODIUM
     Indication: CANCER PAIN
     Dosage: DETAILS NOT REPORTED
     Route: 048
     Dates: end: 20161019
  11. DOMPERIDONE [Concomitant]
     Active Substance: DOMPERIDONE
     Indication: NAUSEA
     Dosage: DETAILS NOT REPORTED
     Route: 048
     Dates: end: 20161019

REACTIONS (4)
  - Hypophagia [Recovering/Resolving]
  - Renal disorder [Not Recovered/Not Resolved]
  - Febrile neutropenia [Recovered/Resolved]
  - Death [Fatal]

NARRATIVE: CASE EVENT DATE: 2016
